FAERS Safety Report 4968405-8 (Version None)
Quarter: 2006Q2

REPORT INFORMATION
  Report Type: 
  Country: None (occurrence: None)
  Receive Date: 20060410
  Receipt Date: 20050720
  Transmission Date: 20061013
  Serious: Yes (Hospitalization)
  Sender: FDA-Public Use
  Company Number: US-MERCK-0507USA03231M

PATIENT
  Age: 35 Year
  Sex: Female

DRUGS (8)
  1. SINGULAIR [Suspect]
     Indication: ASTHMA
     Route: 048
     Dates: start: 20050101, end: 20050401
  2. SINGULAIR [Suspect]
     Route: 048
     Dates: start: 20040101
  3. PREDNISONE [Concomitant]
     Route: 065
  4. ALBUTEROL [Concomitant]
     Route: 065
  5. TESSALON [Concomitant]
     Route: 065
  6. COUGH, COLD, AND FLU THERAPIES (UNSPECIFIED) [Concomitant]
     Route: 065
  7. GUAIFENESIN [Concomitant]
     Route: 065
  8. SINGULAIR [Suspect]
     Route: 048
     Dates: start: 20050101, end: 20050101

REACTIONS (7)
  - ANAEMIA NEONATAL [None]
  - ASTHMA [None]
  - DRUG EXPOSURE DURING PREGNANCY [None]
  - DRUG EXPOSURE VIA BREAST MILK [None]
  - OVERDOSE [None]
  - PREMATURE BABY [None]
  - TREATMENT NONCOMPLIANCE [None]
